FAERS Safety Report 23151311 (Version 1)
Quarter: 2023Q4

REPORT INFORMATION
  Report Type: Spontaneous
  Country: US (occurrence: US)
  Receive Date: 20231107
  Receipt Date: 20231107
  Transmission Date: 20240110
  Serious: Yes (Hospitalization, Other)
  Sender: FDA-Public Use
  Company Number: US-drreddys-SPO/USA/23/0182735

PATIENT
  Age: 54 Year
  Sex: Male

DRUGS (10)
  1. CLOZAPINE [Suspect]
     Active Substance: CLOZAPINE
     Indication: Tardive dyskinesia
     Dosage: 9 YEARS (SINCE 2014) WITH DAILY DOSES RANGING FROM 225MG - 475MG
  2. CLOZAPINE [Suspect]
     Active Substance: CLOZAPINE
     Indication: Schizoaffective disorder
     Dosage: RETITRATED DURING ADMISSION AT BED TIME
  3. CLOZAPINE [Suspect]
     Active Substance: CLOZAPINE
     Dosage: 9 YEARS (SINCE 2014) WITH DAILY DOSES RANGING FROM 225MG - 475MG
     Dates: start: 2014
  4. CLOZAPINE [Suspect]
     Active Substance: CLOZAPINE
     Dosage: AT BED TIME
  5. METOPROLOL SUCCINATE [Concomitant]
     Active Substance: METOPROLOL SUCCINATE
     Indication: Hypertension
  6. VENLAFAXINE HYDROCHLORIDE [Concomitant]
     Active Substance: VENLAFAXINE HYDROCHLORIDE
     Indication: Depression
     Dosage: ER-EXTENDED RELEASE
     Route: 048
  7. METFORMIN [Concomitant]
     Active Substance: METFORMIN HYDROCHLORIDE
     Indication: Diabetes mellitus
  8. SIMVASTATIN [Concomitant]
     Active Substance: SIMVASTATIN
     Indication: Hyperlipidaemia
     Dosage: AT BEDTIME
  9. BUPROPION [Concomitant]
     Active Substance: BUPROPION
     Indication: Depression
     Dosage: XL
  10. ASPIRIN [Concomitant]
     Active Substance: ASPIRIN
     Indication: Coronary artery disease

REACTIONS (3)
  - Withdrawal syndrome [Recovered/Resolved]
  - Cholinergic rebound syndrome [Recovered/Resolved]
  - Product use in unapproved indication [Unknown]
